FAERS Safety Report 20818657 (Version 1)
Quarter: 2022Q2

REPORT INFORMATION
  Report Type: Report from Study
  Country: US (occurrence: US)
  Receive Date: 20220512
  Receipt Date: 20220512
  Transmission Date: 20220721
  Serious: No
  Sender: FDA-Public Use
  Company Number: US-CELGENE-USA-20220105276

PATIENT
  Age: 51 Year
  Sex: Female
  Weight: 76.657 kg

DRUGS (1)
  1. REVLIMID [Suspect]
     Active Substance: LENALIDOMIDE
     Indication: Plasma cell myeloma
     Dosage: DOSE: 25 MILLIGRAM, DAILY FOR 21 DAYS OF EVERY 28 DAY CYCLE?BATCH NUMBER: A3571A, EXPIRATION DATE: 3
     Route: 048
     Dates: start: 202102

REACTIONS (3)
  - Pain in extremity [Unknown]
  - Rash [Unknown]
  - Back pain [Unknown]
